FAERS Safety Report 9145641 (Version 6)
Quarter: 2013Q4

REPORT INFORMATION
  Report Type: Spontaneous
  Country: US (occurrence: US)
  Receive Date: 20130307
  Receipt Date: 20131205
  Transmission Date: 20140711
  Serious: Yes (Life-Threatening, Hospitalization)
  Sender: FDA-Public Use
  Company Number: US-JNJFOC-20130300265

PATIENT
  Age: 47 Year
  Sex: Male
  Weight: 113.4 kg

DRUGS (5)
  1. STELARA [Suspect]
     Indication: PSORIASIS
     Route: 058
     Dates: start: 20131103, end: 20131103
  2. STELARA [Suspect]
     Indication: PSORIASIS
     Dosage: SECOND INJECTION
     Route: 058
     Dates: start: 20121205, end: 20121205
  3. STELARA [Suspect]
     Indication: PSORIASIS
     Route: 058
     Dates: start: 20121108, end: 20121108
  4. METFORMIN [Suspect]
     Indication: DIABETES MELLITUS
     Dosage: SINCE LONG TIME
     Route: 048
  5. SIMVASTATIN [Suspect]
     Indication: BLOOD CHOLESTEROL INCREASED
     Dosage: SINCE LONG TIME
     Route: 048

REACTIONS (5)
  - Myocardial infarction [Recovered/Resolved with Sequelae]
  - Cardiac failure congestive [Recovered/Resolved]
  - Pneumonia [Recovered/Resolved]
  - Coronary artery occlusion [Recovered/Resolved]
  - Drug dose omission [Unknown]
